FAERS Safety Report 6570606-2 (Version None)
Quarter: 2010Q1

REPORT INFORMATION
  Report Type: 
  Country: None (occurrence: None)
  Receive Date: 20100204
  Receipt Date: 20100201
  Transmission Date: 20100710
  Serious: No
  Sender: FDA-Public Use
  Company Number: US-B.I. PHARMACEUTICALS,INC./RIDGEFIELD-2010-BP-01178BP

PATIENT
  Age: 58 Year
  Sex: Male

DRUGS (1)
  1. FLOMAX [Suspect]
     Indication: PROSTATOMEGALY
     Dosage: 0.8 MG
     Route: 048
     Dates: start: 20100101, end: 20100101

REACTIONS (3)
  - INAPPROPRIATE SCHEDULE OF DRUG ADMINISTRATION [None]
  - PRODUCTIVE COUGH [None]
  - RHINORRHOEA [None]
